FAERS Safety Report 5944752-8 (Version None)
Quarter: 2008Q4

REPORT INFORMATION
  Report Type: 
  Country: None (occurrence: None)
  Receive Date: 20081107
  Receipt Date: 20081030
  Transmission Date: 20090506
  Serious: Yes (Hospitalization)
  Sender: FDA-Public Use
  Company Number: US-BAXTER-2008BH011660

PATIENT
  Age: 47 Year
  Sex: Male

DRUGS (1)
  1. TISSEEL VH/SD KIT LYOPHILIZED [Suspect]
     Indication: INTERVERTEBRAL DISC DISORDER
     Dosage: DOSE UNIT:UNKNOWN

REACTIONS (2)
  - BACK PAIN [None]
  - INTERVERTEBRAL DISCITIS [None]
